FAERS Safety Report 6209249-9 (Version None)
Quarter: 2009Q2

REPORT INFORMATION
  Report Type: 
  Country: None (occurrence: None)
  Receive Date: 20090529
  Receipt Date: 20090526
  Transmission Date: 20091009
  Serious: Yes (Hospitalization, Other)
  Sender: FDA-Public Use
  Company Number: US-ABBOTT-09P-163-0576027-00

PATIENT
  Sex: Male
  Weight: 73.548 kg

DRUGS (5)
  1. HUMIRA [Suspect]
     Indication: CROHN'S DISEASE
     Route: 058
     Dates: start: 20090309, end: 20090401
  2. HUMIRA [Suspect]
     Route: 058
     Dates: start: 20090501
  3. PENTASA [Concomitant]
     Indication: CROHN'S DISEASE
     Route: 048
  4. ENTOCORT EC [Concomitant]
     Indication: CROHN'S DISEASE
     Route: 048
  5. MULTIVITAMIN W/B12 [Concomitant]
     Indication: VITAMIN SUPPLEMENTATION

REACTIONS (3)
  - ABDOMINAL PAIN [None]
  - INTESTINAL INFARCTION [None]
  - PYREXIA [None]
